FAERS Safety Report 14305552 (Version 1)
Quarter: 2017Q4

REPORT INFORMATION
  Report Type: Spontaneous
  Country: JP (occurrence: JP)
  Receive Date: 20171219
  Receipt Date: 20171219
  Transmission Date: 20180321
  Serious: Yes (Death, Other)
  Sender: FDA-Public Use
  Company Number: JP-OTSUKA-03100-JPN-06-0612

PATIENT
  Age: 56 Year
  Sex: Male
  Weight: 50 kg

DRUGS (9)
  1. DOGMATYL [Concomitant]
     Active Substance: SULPIRIDE
     Indication: DELUSION
  2. RIVOTRIL [Concomitant]
     Active Substance: CLONAZEPAM
     Indication: TREMOR
     Dosage: 0.5 MG, TID
     Route: 048
     Dates: end: 20061010
  3. DOGMATYL [Concomitant]
     Active Substance: SULPIRIDE
     Indication: HALLUCINATION
     Dosage: 50 MG, TID
     Route: 048
     Dates: end: 20060718
  4. AKINETON [Concomitant]
     Active Substance: BIPERIDEN HYDROCHLORIDE
     Indication: PARKINSONISM
     Dosage: 1 MG, UNK
     Route: 048
     Dates: end: 20060829
  5. LUNAPRON [Concomitant]
     Indication: HALLUCINATION
     Dosage: 3 MG, UNK
     Route: 048
     Dates: end: 20060801
  6. LEXOTAN [Concomitant]
     Active Substance: BROMAZEPAM
     Indication: ANXIETY
     Dosage: 5 MG, TID
     Route: 048
     Dates: end: 20061010
  7. LUNAPRON [Concomitant]
     Indication: DELUSION
  8. ABILIFY [Suspect]
     Active Substance: ARIPIPRAZOLE
     Indication: SCHIZOPHRENIA
     Dosage: 30 MG, QD
     Route: 048
     Dates: start: 20060704, end: 20061010
  9. CERCINE [Concomitant]
     Active Substance: DIAZEPAM
     Indication: ANXIETY
     Dosage: 2 MG, TID
     Route: 048
     Dates: end: 20060926

REACTIONS (1)
  - Sudden death [Fatal]

NARRATIVE: CASE EVENT DATE: 20061031
